FAERS Safety Report 20323115 (Version 1)
Quarter: 2022Q1

REPORT INFORMATION
  Report Type: Spontaneous
  Country: US (occurrence: US)
  Receive Date: 20220111
  Receipt Date: 20220111
  Transmission Date: 20220423
  Serious: No
  Sender: FDA-Public Use
  Company Number: US-PERRIGO-21US008406

PATIENT
  Age: 77 Year
  Sex: Female
  Weight: 47.619 kg

DRUGS (2)
  1. HYDROCORTISONE [Suspect]
     Active Substance: HYDROCORTISONE
     Indication: Proctalgia
     Dosage: UNKNOWN, NIGHTLY
     Route: 054
     Dates: start: 20210609, end: 20210610
  2. PEPCID [Concomitant]
     Active Substance: FAMOTIDINE
     Indication: Abdominal discomfort
     Dosage: UNKNOWN, UNKNOWN
     Route: 065

REACTIONS (10)
  - Anorectal discomfort [Recovered/Resolved]
  - Condition aggravated [Recovered/Resolved]
  - Flatulence [Recovered/Resolved]
  - Constipation [Recovered/Resolved]
  - Vulvovaginal burning sensation [Recovered/Resolved]
  - Vulvovaginal pain [Recovered/Resolved]
  - Hypersensitivity [Recovered/Resolved]
  - Accidental exposure to product [Recovered/Resolved]
  - Off label use [Recovered/Resolved]
  - Incorrect route of product administration [Recovered/Resolved]

NARRATIVE: CASE EVENT DATE: 20210609
